FAERS Safety Report 7371429-7 (Version None)
Quarter: 2011Q1

REPORT INFORMATION
  Report Type: 
  Country: None (occurrence: None)
  Receive Date: 20110324
  Receipt Date: 20110310
  Transmission Date: 20110831
  Serious: Yes (Hospitalization)
  Sender: FDA-Public Use
  Company Number: US-RANBAXY-2011RR-41882

PATIENT
  Sex: Female

DRUGS (17)
  1. PREDNISOLONE [Suspect]
     Dosage: 40 MG, UNK
     Route: 048
  2. LEVAQUIN [Suspect]
     Indication: PNEUMONIA
     Dosage: UNK MG, QD
     Route: 065
     Dates: start: 20080102, end: 20080111
  3. ECOTRIM [Concomitant]
  4. LEVAQUIN [Suspect]
     Indication: LOWER RESPIRATORY TRACT INFECTION
     Dosage: 500 MG, QD
     Route: 048
     Dates: start: 20080111
  5. FLECAINE [Concomitant]
     Dosage: 200 MG, UNK
  6. PREDNISOLONE [Suspect]
     Dosage: 10 MG, UNK
     Route: 048
     Dates: end: 20050502
  7. ASPIRIN [Concomitant]
  8. MOBIC [Concomitant]
     Indication: FIBROMYALGIA
  9. SPIRIVA [Concomitant]
  10. NASONEX [Concomitant]
  11. PULMICORT [Suspect]
     Indication: PRODUCT USED FOR UNKNOWN INDICATION
     Route: 055
  12. FLECAINE [Concomitant]
     Dosage: 100 MG, BID
  13. ADVAIR DISKUS 100/50 [Concomitant]
  14. PREDNISOLONE [Suspect]
     Indication: PRODUCT USED FOR UNKNOWN INDICATION
     Dosage: 60 MG, UNK
     Route: 048
  15. CIPROFLOXACIN [Suspect]
     Indication: PRODUCT USED FOR UNKNOWN INDICATION
     Route: 065
  16. DILTIAZEM [Concomitant]
  17. CARDIZEM [Concomitant]
     Dosage: 180 MG, UNK

REACTIONS (8)
  - ROTATOR CUFF SYNDROME [None]
  - DIVERTICULITIS [None]
  - FIBROMYALGIA [None]
  - ATRIAL FIBRILLATION [None]
  - INTENTIONAL DRUG MISUSE [None]
  - DRUG INEFFECTIVE [None]
  - TENDONITIS [None]
  - TENOSYNOVITIS [None]
